FAERS Safety Report 4491670-0 (Version None)
Quarter: 2004Q4

REPORT INFORMATION
  Report Type: 
  Country: None (occurrence: None)
  Receive Date: 20041101
  Receipt Date: 20041022
  Transmission Date: 20050328
  Serious: Yes (Hospitalization)
  Sender: FDA-Public Use
  Company Number: US-2004-033950

PATIENT
  Age: 71 Year
  Sex: Female

DRUGS (1)
  1. BETASERON [Suspect]
     Indication: MULTIPLE SCLEROSIS
     Dosage: 8 MIU, EVERY 2D, SUBCUTANEOUS
     Route: 058
     Dates: start: 20040722

REACTIONS (5)
  - CONDITION AGGRAVATED [None]
  - DIFFICULTY IN WALKING [None]
  - INJECTION SITE INFECTION [None]
  - LOCALISED INFECTION [None]
  - MULTIPLE SCLEROSIS [None]
